FAERS Safety Report 5390841-9 (Version None)
Quarter: 2007Q3

REPORT INFORMATION
  Report Type: 
  Country: None (occurrence: None)
  Receive Date: 20070713
  Receipt Date: 20070711
  Transmission Date: 20080115
  Serious: Yes (Death)
  Sender: FDA-Public Use
  Company Number: TCI2007A02905

PATIENT
  Age: 81 Year
  Sex: Male

DRUGS (7)
  1. LEUPROLIDE ACETATE [Suspect]
     Indication: PROSTATE CANCER STAGE II
     Dosage: 11.25 MG (11.25 MG, 1 IN 12 WK) SUBCUTANEOUS
     Route: 058
     Dates: start: 20061031, end: 20070130
  2. ADALAT [Concomitant]
  3. LIPITOL       (ATORVASTATIN CALCIUM) [Concomitant]
  4. ASPIRIN [Concomitant]
  5. LASIX [Concomitant]
  6. NITROPEN                  (GLYCERYL TRINITRATE) [Concomitant]
  7. FRANDOL TAPE           (POULTICE OR PATCH) [Concomitant]

REACTIONS (1)
  - DEATH [None]
